FAERS Safety Report 7318429-0 (Version None)
Quarter: 2011Q1

REPORT INFORMATION
  Report Type: 
  Country: None (occurrence: None)
  Receive Date: 20110223
  Receipt Date: 20110223
  Transmission Date: 20110831
  Serious: Yes (Hospitalization)
  Sender: FDA-Public Use
  Company Number: None

PATIENT
  Age: 69 Year
  Sex: Male
  Weight: 118 kg

DRUGS (2)
  1. METHADON HCL TAB [Suspect]
     Indication: PAIN
     Dosage: 20 MG TID PO
     Route: 048
     Dates: start: 20110209, end: 20110214
  2. ZOLPIDEM [Suspect]
     Indication: SLEEP DISORDER
     Dosage: 10 MG HS PO
     Route: 048
     Dates: start: 20101119, end: 20110214

REACTIONS (1)
  - MENTAL STATUS CHANGES [None]
